FAERS Safety Report 25014969 (Version 1)
Quarter: 2025Q1

REPORT INFORMATION
  Report Type: Report from Study
  Country: US (occurrence: US)
  Receive Date: 20250226
  Receipt Date: 20250226
  Transmission Date: 20250408
  Serious: Yes (Death, Hospitalization, Other)
  Sender: JAZZ
  Company Number: US-JAZZ PHARMACEUTICALS-2024-US-022225

PATIENT
  Sex: Male

DRUGS (1)
  1. ZANIDATAMAB [Suspect]
     Active Substance: ZANIDATAMAB
     Indication: Product used for unknown indication
     Dates: start: 20241023, end: 20241120

REACTIONS (1)
  - Disease progression [Fatal]
